FAERS Safety Report 11416904 (Version 1)
Quarter: 2015Q3

REPORT INFORMATION
  Report Type: Report from Study
  Country: US (occurrence: US)
  Receive Date: 20150825
  Receipt Date: 20150825
  Transmission Date: 20151125
  Serious: Yes (Other)
  Sender: FDA-Public Use
  Company Number: PHEH2014US026159

PATIENT
  Sex: Female

DRUGS (3)
  1. MYFORTIC [Suspect]
     Active Substance: MYCOPHENOLATE SODIUM
     Indication: RENAL TRANSPLANT
     Dosage: 540 MG, BID
     Route: 048
     Dates: start: 20100626
  2. NEORAL [Suspect]
     Active Substance: CYCLOSPORINE
     Indication: RENAL TRANSPLANT
     Dosage: 125 MG, BID
     Route: 048
     Dates: start: 20100626
  3. NEORAL [Suspect]
     Active Substance: CYCLOSPORINE
     Dosage: 50 OR 75 MG, BID
     Route: 048

REACTIONS (5)
  - Blood creatinine increased [Unknown]
  - Incorrect dose administered [Unknown]
  - Fear [Unknown]
  - Malaise [Recovered/Resolved]
  - Renal impairment [Unknown]
